FAERS Safety Report 15327891 (Version 1)
Quarter: 2018Q3

REPORT INFORMATION
  Report Type: Spontaneous
  Country: US (occurrence: US)
  Receive Date: 20180828
  Receipt Date: 20180828
  Transmission Date: 20181010
  Serious: No
  Sender: FDA-Public Use
  Company Number: US-ROCHE-2144114

PATIENT

DRUGS (2)
  1. ALECENSA [Suspect]
     Active Substance: ALECTINIB HYDROCHLORIDE
     Indication: PRODUCT USED FOR UNKNOWN INDICATION
     Route: 065
  2. ZELBORAF [Suspect]
     Active Substance: VEMURAFENIB
     Indication: PRODUCT USED FOR UNKNOWN INDICATION
     Route: 065

REACTIONS (2)
  - No adverse event [Unknown]
  - Product storage error [Unknown]
